FAERS Safety Report 10060502 (Version 3)
Quarter: 2014Q2

REPORT INFORMATION
  Report Type: Spontaneous
  Country: IE (occurrence: IE)
  Receive Date: 20140404
  Receipt Date: 20140512
  Transmission Date: 20141212
  Serious: Yes (Hospitalization)
  Sender: FDA-Public Use
  Company Number: IE-AMGEN-IRLSP2014014630

PATIENT
  Age: 67 Year
  Sex: Female

DRUGS (1)
  1. NEULASTA [Suspect]
     Indication: T-CELL LYMPHOMA
     Dosage: 6 MG/0.6 ML, POST CHEMO 3 WEEKLY
     Route: 058

REACTIONS (4)
  - Back pain [Unknown]
  - Arthralgia [Not Recovered/Not Resolved]
  - Mobility decreased [Unknown]
  - Bone pain [Not Recovered/Not Resolved]
